FAERS Safety Report 25778455 (Version 2)
Quarter: 2025Q4

REPORT INFORMATION
  Report Type: Spontaneous
  Country: MX (occurrence: MX)
  Receive Date: 20250909
  Receipt Date: 20251023
  Transmission Date: 20260119
  Serious: No
  Sender: ROCHE
  Company Number: MX-ROCHE-10000380771

PATIENT
  Age: 42 Year
  Sex: Female
  Weight: 52 kg

DRUGS (8)
  1. RITUXIMAB [Suspect]
     Active Substance: RITUXIMAB
     Indication: Neuromyelitis optica spectrum disorder
     Route: 042
     Dates: start: 2015, end: 202411
  2. RITUXIMAB [Suspect]
     Active Substance: RITUXIMAB
     Indication: Systemic lupus erythematosus
  3. TOCILIZUMAB [Suspect]
     Active Substance: TOCILIZUMAB
     Indication: Neuromyelitis optica spectrum disorder
     Dosage: DOSE NOT REPORTED
     Route: 042
     Dates: start: 20250724
  4. TOCILIZUMAB [Suspect]
     Active Substance: TOCILIZUMAB
     Indication: Systemic lupus erythematosus
  5. PENICILLIN [Suspect]
     Active Substance: PENICILLIN
     Indication: Product used for unknown indication
     Dosage: DOSE ANF FREQUENCY WERE ASKED, BUT THEY ARE UNKNOWN
     Route: 042
     Dates: start: 2023, end: 2023
  6. LEVOTHYROXINE [Concomitant]
     Active Substance: LEVOTHYROXINE
  7. PREGABALIN [Concomitant]
     Active Substance: PREGABALIN
  8. human immunoglobin [Concomitant]
     Dosage: DOSE AND FREQUENCY WERE NOT REPORTED
     Dates: start: 202507

REACTIONS (4)
  - Off label use [Unknown]
  - Off label use [Unknown]
  - Drug hypersensitivity [Recovered/Resolved]
  - Influenza [Recovered/Resolved]

NARRATIVE: CASE EVENT DATE: 20250724
